FAERS Safety Report 4866988-X (Version None)
Quarter: 2005Q4

REPORT INFORMATION
  Report Type: 
  Country: None (occurrence: None)
  Receive Date: 20051227
  Receipt Date: 20050928
  Transmission Date: 20060501
  Serious: Yes (Hospitalization)
  Sender: FDA-Public Use
  Company Number: US-MERCK-0509USA04496

PATIENT
  Age: 74 Year
  Sex: Female
  Weight: 102 kg

DRUGS (4)
  1. VIOXX [Suspect]
     Indication: PAIN
     Route: 048
     Dates: start: 19950101, end: 20000101
  2. VIOXX [Suspect]
     Route: 048
     Dates: start: 19950101, end: 20000101
  3. VIOXX [Suspect]
     Indication: ARTHRITIS
     Route: 048
     Dates: start: 19950101, end: 20000101
  4. VIOXX [Suspect]
     Route: 048
     Dates: start: 19950101, end: 20000101

REACTIONS (3)
  - CEREBROVASCULAR ACCIDENT [None]
  - INJURY [None]
  - PRESCRIBED OVERDOSE [None]
